FAERS Safety Report 8468935-0 (Version None)
Quarter: 2012Q2

REPORT INFORMATION
  Report Type: 
  Country: None (occurrence: None)
  Receive Date: 20120626
  Receipt Date: 20120618
  Transmission Date: 20120825
  Serious: Yes (Other)
  Sender: FDA-Public Use
  Company Number: US-BAXTER-2012BAX007649

PATIENT
  Sex: Female

DRUGS (1)
  1. ARALAST NP [Suspect]
     Route: 042

REACTIONS (3)
  - CHILLS [None]
  - PYREXIA [None]
  - DEVICE RELATED INFECTION [None]
